FAERS Safety Report 6566773-7 (Version None)
Quarter: 2010Q1

REPORT INFORMATION
  Report Type: 
  Country: None (occurrence: None)
  Receive Date: 20100202
  Receipt Date: 20100121
  Transmission Date: 20100710
  Serious: Yes (Hospitalization, Other)
  Sender: FDA-Public Use
  Company Number: JP-ELI_LILLY_AND_COMPANY-JP201001004111

PATIENT
  Sex: Male
  Weight: 64.5 kg

DRUGS (7)
  1. GEMCITABINE HCL [Suspect]
     Indication: PANCREATIC CARCINOMA NON-RESECTABLE
     Dosage: 1705 MG, OTHER
     Route: 042
     Dates: start: 20090610, end: 20100106
  2. BLINDED THERAPY [Suspect]
     Indication: PANCREATIC CARCINOMA NON-RESECTABLE
     Dosage: 1 ML, OTHER
     Route: 058
     Dates: start: 20090610, end: 20100113
  3. CONIEL [Concomitant]
     Indication: HYPERTENSION
     Dosage: 4 MG, DAILY (1/D)
     Route: 048
     Dates: start: 20080118
  4. GEBEN [Concomitant]
     Indication: SKIN ULCER
     Dosage: UNK, DAILY (1/D)
     Route: 062
     Dates: start: 20091014, end: 20091117
  5. ELENTAL [Concomitant]
     Indication: MEDICAL DIET
     Dosage: 80 G, DAILY (1/D)
     Route: 048
     Dates: start: 20100106, end: 20100108
  6. MYSLEE [Concomitant]
     Indication: INSOMNIA
     Dosage: 25 MG, DAILY (1/D)
     Route: 048
     Dates: start: 20091116
  7. LAXOBERON [Concomitant]
     Indication: CONSTIPATION
     Dosage: 25 MG, DAILY (1/D)
     Route: 048
     Dates: start: 20091116

REACTIONS (6)
  - INTESTINAL OBSTRUCTION [None]
  - MALIGNANT ASCITES [None]
  - MALIGNANT NEOPLASM PROGRESSION [None]
  - PAIN [None]
  - PANCREATIC CARCINOMA [None]
  - PLATELET COUNT DECREASED [None]
